FAERS Safety Report 8618521-4 (Version None)
Quarter: 2012Q3

REPORT INFORMATION
  Report Type: 
  Country: None (occurrence: None)
  Receive Date: 20120824
  Receipt Date: 20120820
  Transmission Date: 20120928
  Serious: Yes (Hospitalization, Other)
  Sender: FDA-Public Use
  Company Number: US-TEVA-355121USA

PATIENT
  Age: 52 Year
  Sex: Female

DRUGS (11)
  1. DAUNORUBICIN HCL [Suspect]
     Indication: B PRECURSOR TYPE ACUTE LEUKAEMIA
     Dosage: ACCORDING TO LARSON REGIMEN
     Route: 065
  2. METHYLPREDNISOLONE SODIUM SUCCINATE [Suspect]
     Indication: B PRECURSOR TYPE ACUTE LEUKAEMIA
     Route: 042
  3. ONDANSETRON [Concomitant]
     Indication: PREMEDICATION
     Route: 065
  4. VORICONAZOLE [Concomitant]
     Route: 065
  5. MORPHINE SULFATE [Concomitant]
     Indication: ABDOMINAL PAIN
     Dosage: LONG-ACTING
     Route: 048
  6. MORPHINE [Concomitant]
     Indication: ABDOMINAL PAIN
     Route: 042
  7. DAUNORUBICIN HCL [Suspect]
     Dosage: AT 50% DOSAGE
     Route: 065
  8. PREDNISONE TAB [Suspect]
     Indication: B PRECURSOR TYPE ACUTE LEUKAEMIA
     Dosage: ACCORDING TO LARSON REGIMEN
     Route: 065
  9. DEXAMETHASONE [Suspect]
     Indication: PREMEDICATION
     Route: 065
  10. VINCRISTINE [Suspect]
     Indication: B PRECURSOR TYPE ACUTE LEUKAEMIA
     Dosage: ACCORDING TO LARSON REGIMEN
     Route: 065
  11. CYCLOPHOSPHAMIDE [Suspect]
     Indication: B PRECURSOR TYPE ACUTE LEUKAEMIA
     Dosage: ACCORDING TO LARSON REGIMEN
     Route: 065

REACTIONS (4)
  - POSTERIOR REVERSIBLE ENCEPHALOPATHY SYNDROME [None]
  - TUMOUR LYSIS SYNDROME [None]
  - INSOMNIA [None]
  - NEUTROPENIA [None]
